FAERS Safety Report 7273758-4 (Version None)
Quarter: 2011Q1

REPORT INFORMATION
  Report Type: 
  Country: None (occurrence: None)
  Receive Date: 20110203
  Receipt Date: 20110124
  Transmission Date: 20110831
  Serious: Yes (Hospitalization, Other)
  Sender: FDA-Public Use
  Company Number: ES-BAXTER-2011BH002456

PATIENT
  Age: 36 Year
  Sex: Female

DRUGS (5)
  1. DEXTROSE [Suspect]
     Indication: DIABETES PROPHYLAXIS
     Route: 042
  2. DIAZOXIDE [Concomitant]
     Indication: PRODUCT USED FOR UNKNOWN INDICATION
     Route: 065
  3. SOMATOSTATIN [Concomitant]
     Indication: PRODUCT USED FOR UNKNOWN INDICATION
     Route: 065
  4. DEXTROSE [Suspect]
     Indication: DIABETES PROPHYLAXIS
     Route: 042
  5. DEXTROSE 30% IN PLASTIC CONTAINER [Suspect]
     Indication: DIABETES PROPHYLAXIS
     Route: 042

REACTIONS (2)
  - DRUG INTERACTION [None]
  - METABOLIC ACIDOSIS [None]
